FAERS Safety Report 24531305 (Version 1)
Quarter: 2024Q4

REPORT INFORMATION
  Report Type: Report from Study
  Country: US (occurrence: US)
  Receive Date: 20241022
  Receipt Date: 20241022
  Transmission Date: 20250115
  Serious: No
  Sender: ROCHE
  Company Number: US-ROCHE-3436058

PATIENT
  Sex: Female

DRUGS (13)
  1. PULMOZYME [Suspect]
     Active Substance: DORNASE ALFA
     Indication: Bronchiectasis
     Route: 055
     Dates: start: 20210920
  2. PULMOZYME [Suspect]
     Active Substance: DORNASE ALFA
     Indication: Heterotaxia
  3. PULMOZYME [Suspect]
     Active Substance: DORNASE ALFA
     Indication: Primary ciliary dyskinesia
  4. ACCUNEB [Concomitant]
     Active Substance: ALBUTEROL SULFATE
  5. AMOXIL [Concomitant]
     Active Substance: AMOXICILLIN
  6. CAYSTON [Concomitant]
     Active Substance: AZTREONAM
  7. KEFLEX [Concomitant]
     Active Substance: CEPHALEXIN
  8. EPIPEN [Concomitant]
     Active Substance: EPINEPHRINE
  9. TRELEGY ELLIPTA [Concomitant]
     Active Substance: FLUTICASONE FUROATE\UMECLIDINIUM BROMIDE\VILANTEROL TRIFENATATE
  10. STROMECTOL [Concomitant]
     Active Substance: IVERMECTIN
  11. XOPENEX HFA [Concomitant]
     Active Substance: LEVALBUTEROL TARTRATE
  12. DELTASONE [Concomitant]
     Active Substance: PREDNISONE
  13. TAZORAC [Concomitant]
     Active Substance: TAZAROTENE

REACTIONS (2)
  - Off label use [Unknown]
  - No adverse event [Unknown]
